FAERS Safety Report 21704443 (Version 2)
Quarter: 2022Q4

REPORT INFORMATION
  Report Type: Spontaneous
  Country: JP (occurrence: JP)
  Receive Date: 20221209
  Receipt Date: 20221221
  Transmission Date: 20230112
  Serious: Yes (Hospitalization, Other)
  Sender: FDA-Public Use
  Company Number: JP-002147023-NVSJ2022JP275762

PATIENT
  Age: 82 Year
  Sex: Female
  Weight: 68 kg

DRUGS (7)
  1. FLUMAZENIL [Suspect]
     Active Substance: FLUMAZENIL
     Indication: Product used for unknown indication
     Dosage: 0.2 MG EVERY 5 MIN UP TO A TOTAL OF 1.0 MG
     Route: 042
  2. REMIMAZOLAM [Suspect]
     Active Substance: REMIMAZOLAM
     Indication: Anaesthesia procedure
     Dosage: INDUCTION WITH 10 MG/KG/H
     Route: 065
  3. REMIMAZOLAM [Suspect]
     Active Substance: REMIMAZOLAM
     Dosage: MAINTAINED WITH 0.8 MG/KG/H
     Route: 065
  4. ROCURONIUM [Suspect]
     Active Substance: ROCURONIUM BROMIDE
     Indication: Anaesthesia procedure
     Dosage: 50 MG
     Route: 065
  5. REMIFENTANIL HYDROCHLORIDE [Suspect]
     Active Substance: REMIFENTANIL HYDROCHLORIDE
     Indication: Anaesthesia procedure
     Dosage: INDUCTION WITH 0.5 /MICROG/KG/MIN
     Route: 065
  6. REMIFENTANIL HYDROCHLORIDE [Suspect]
     Active Substance: REMIFENTANIL HYDROCHLORIDE
     Dosage: MAINTAINED WITH 0.2 /MICROG/KG/MIN
     Route: 065
  7. FENTANYL [Suspect]
     Active Substance: FENTANYL
     Indication: Anaesthesia procedure
     Dosage: 200 MICROGRAM WAS ADMINISTERED 20 MIN BEFORE THE END OF SURGERY
     Route: 065

REACTIONS (3)
  - Cardiac failure [Recovered/Resolved]
  - Pulmonary oedema [Recovered/Resolved]
  - Hypoxia [Recovered/Resolved]
